FAERS Safety Report 10926397 (Version 1)
Quarter: 2015Q1

REPORT INFORMATION
  Report Type: Spontaneous
  Country: JP (occurrence: None)
  Receive Date: 20150316
  Receipt Date: 20150316
  Transmission Date: 20150721
  Serious: Yes (Other)
  Sender: FDA-Public Use
  Company Number: JP2015JPN030574

PATIENT
  Age: 41 Year
  Sex: Male

DRUGS (2)
  1. EPZICOM [Suspect]
     Active Substance: ABACAVIR SULFATE\LAMIVUDINE
     Indication: HIV INFECTION
     Route: 048
     Dates: start: 20140627, end: 20141224
  2. ISENTRESS [Concomitant]
     Active Substance: RALTEGRAVIR POTASSIUM

REACTIONS (8)
  - Cytomegalovirus chorioretinitis [None]
  - Myositis [None]
  - Neck mass [None]
  - Lymphoma [None]
  - Brain mass [None]
  - Immune reconstitution inflammatory syndrome [None]
  - Pain in extremity [None]
  - Sensory disturbance [None]

NARRATIVE: CASE EVENT DATE: 201406
